FAERS Safety Report 15476995 (Version 1)
Quarter: 2018Q4

REPORT INFORMATION
  Report Type: Spontaneous
  Country: US (occurrence: US)
  Receive Date: 20181001
  Receipt Date: 20181001
  Transmission Date: 20190205
  Serious: No
  Sender: FDA-Public Use
  Company Number: None

PATIENT
  Age: 66 Year
  Sex: Male

DRUGS (1)
  1. HARVONI [Suspect]
     Active Substance: LEDIPASVIR\SOFOSBUVIR
     Dates: start: 20180807

REACTIONS (5)
  - Dyspnoea [None]
  - Fatigue [None]
  - Dehydration [None]
  - Stomatitis [None]
  - Swollen tongue [None]

NARRATIVE: CASE EVENT DATE: 20180901
